FAERS Safety Report 7734938-4 (Version None)
Quarter: 2011Q3

REPORT INFORMATION
  Report Type: 
  Country: None (occurrence: None)
  Receive Date: 20110907
  Receipt Date: 20110830
  Transmission Date: 20111222
  Serious: Yes (Hospitalization)
  Sender: FDA-Public Use
  Company Number: PHHO2011JP12072

PATIENT
  Sex: Male
  Weight: 105 kg

DRUGS (2)
  1. GILENYA [Suspect]
     Dosage: DOSE BLINDED
     Dates: start: 20110725
  2. GILENYA [Suspect]
     Indication: MULTIPLE SCLEROSIS
     Dosage: DOSE BLINDED
     Route: 048
     Dates: start: 20100115, end: 20100713

REACTIONS (1)
  - APPENDICITIS [None]
